FAERS Safety Report 14457941 (Version 1)
Quarter: 2018Q1

REPORT INFORMATION
  Report Type: Report from Study
  Country: US (occurrence: US)
  Receive Date: 20180130
  Receipt Date: 20180130
  Transmission Date: 20180509
  Serious: Yes (Hospitalization, Other)
  Sender: FDA-Public Use
  Company Number: US-GILEAD-2017-0282840

PATIENT
  Age: 65 Year
  Sex: Female
  Weight: 134.24 kg

DRUGS (37)
  1. LIPITOR [Concomitant]
     Active Substance: ATORVASTATIN CALCIUM
  2. XANAX [Concomitant]
     Active Substance: ALPRAZOLAM
     Indication: SOMNOLENCE
  3. DEXTROSE. [Concomitant]
     Active Substance: DEXTROSE
     Indication: HYPOGLYCAEMIA
  4. ADEMPAS [Concomitant]
     Active Substance: RIOCIGUAT
     Dosage: 1.5 MG, TID
     Route: 065
  5. ADCIRCA [Concomitant]
     Active Substance: TADALAFIL
  6. PRADAXA [Concomitant]
     Active Substance: DABIGATRAN ETEXILATE MESYLATE
  7. XANAX [Concomitant]
     Active Substance: ALPRAZOLAM
     Indication: RESTLESSNESS
  8. TUMS                               /00193601/ [Concomitant]
     Active Substance: CALCIUM CARBONATE\MAGNESIUM CARBONATE\MAGNESIUM TRISILICATE
     Indication: DYSPEPSIA
  9. APRESOLINE HYDROCHLORIDE [Concomitant]
     Active Substance: HYDRALAZINE HYDROCHLORIDE
  10. MILK OF MAGNESIA [Concomitant]
     Active Substance: MAGNESIUM HYDROXIDE
     Indication: CONSTIPATION
  11. ALDACTONE [Concomitant]
     Active Substance: SPIRONOLACTONE
  12. BUMEX [Concomitant]
     Active Substance: BUMETANIDE
  13. XANAX [Concomitant]
     Active Substance: ALPRAZOLAM
     Indication: ANXIETY
  14. TYLENOL [Concomitant]
     Active Substance: ACETAMINOPHEN
     Indication: HEADACHE
  15. ZAROXOLYN [Concomitant]
     Active Substance: METOLAZONE
  16. ZOFRAN [Concomitant]
     Active Substance: ONDANSETRON HYDROCHLORIDE
     Indication: VOMITING
  17. GLIMEPIRIDE. [Concomitant]
     Active Substance: GLIMEPIRIDE
  18. ALPRAZOLAM. [Concomitant]
     Active Substance: ALPRAZOLAM
  19. HYDRALAZINE HCL [Concomitant]
     Active Substance: HYDRALAZINE HYDROCHLORIDE
  20. CARTIA XT [Concomitant]
     Active Substance: DILTIAZEM HYDROCHLORIDE
  21. METFORMIN HCL [Concomitant]
     Active Substance: METFORMIN HYDROCHLORIDE
  22. FERROUS SULFATE. [Concomitant]
     Active Substance: FERROUS SULFATE
  23. ZOFRAN [Concomitant]
     Active Substance: ONDANSETRON HYDROCHLORIDE
     Indication: NAUSEA
  24. AMBRISENTAN [Suspect]
     Active Substance: AMBRISENTAN
     Indication: PRODUCT USED FOR UNKNOWN INDICATION
     Dosage: 10 MG, QD
     Route: 048
     Dates: start: 20140619
  25. METFORMIN [Concomitant]
     Active Substance: METFORMIN HYDROCHLORIDE
  26. LANTUS [Concomitant]
     Active Substance: INSULIN GLARGINE
  27. VITAMIN B12 [Concomitant]
     Active Substance: CYANOCOBALAMIN
  28. TIAZAC [Concomitant]
     Active Substance: DILTIAZEM HYDROCHLORIDE
  29. LASIX [Concomitant]
     Active Substance: FUROSEMIDE
  30. IRON [Concomitant]
     Active Substance: IRON
  31. DOXAZOSIN MESYLATE. [Concomitant]
     Active Substance: DOXAZOSIN MESYLATE
  32. TYLENOL [Concomitant]
     Active Substance: ACETAMINOPHEN
     Indication: PAIN
  33. SODIUM CHLORIDE. [Concomitant]
     Active Substance: SODIUM CHLORIDE
     Indication: TRANSFUSION
  34. HUMALOG [Concomitant]
     Active Substance: INSULIN LISPRO
  35. SODIUM BICARBONATE. [Concomitant]
     Active Substance: SODIUM BICARBONATE
  36. CARDURA [Concomitant]
     Active Substance: DOXAZOSIN MESYLATE
  37. COLACE [Concomitant]
     Active Substance: DOCUSATE SODIUM
     Indication: CONSTIPATION

REACTIONS (14)
  - Dyspnoea [Not Recovered/Not Resolved]
  - Palpitations [Unknown]
  - Peripheral swelling [Not Recovered/Not Resolved]
  - Dyspnoea exertional [Not Recovered/Not Resolved]
  - Anaemia [Not Recovered/Not Resolved]
  - Heart rate increased [Not Recovered/Not Resolved]
  - Condition aggravated [Not Recovered/Not Resolved]
  - Cardiac failure congestive [Unknown]
  - Faeces discoloured [Not Recovered/Not Resolved]
  - Dizziness exertional [Not Recovered/Not Resolved]
  - Anaemia [Recovered/Resolved]
  - Hypoxia [Unknown]
  - Atypical pneumonia [Unknown]
  - Dizziness [Not Recovered/Not Resolved]
